FAERS Safety Report 10220559 (Version 1)
Quarter: 2014Q2

REPORT INFORMATION
  Report Type: Spontaneous
  Country: FR (occurrence: FR)
  Receive Date: 20140606
  Receipt Date: 20140606
  Transmission Date: 20141212
  Serious: Yes (Hospitalization, Other)
  Sender: FDA-Public Use
  Company Number: FR-009507513-1406FRA002793

PATIENT
  Age: 59 Year
  Sex: Female

DRUGS (1)
  1. DIPROSTENE [Suspect]
     Dosage: 1 DF, ONCE
     Route: 014
     Dates: start: 201401, end: 201401

REACTIONS (1)
  - Anaphylactic shock [Recovered/Resolved]
